FAERS Safety Report 22638660 (Version 1)
Quarter: 2023Q2

REPORT INFORMATION
  Report Type: Spontaneous
  Country: JP (occurrence: JP)
  Receive Date: 20230626
  Receipt Date: 20230626
  Transmission Date: 20230721
  Serious: Yes (Other)
  Sender: FDA-Public Use
  Company Number: JP-SA-2023SA191052

PATIENT
  Age: 18 Year
  Sex: Male

DRUGS (1)
  1. DUPIXENT [Suspect]
     Active Substance: DUPILUMAB
     Indication: Asthma
     Dosage: DAILY DOSE: 300 MG
     Route: 058
     Dates: end: 202305

REACTIONS (1)
  - Eosinophilic pneumonia [Recovering/Resolving]

NARRATIVE: CASE EVENT DATE: 20230401
